FAERS Safety Report 5127840-8 (Version None)
Quarter: 2006Q4

REPORT INFORMATION
  Report Type: 
  Country: None (occurrence: None)
  Receive Date: 20061016
  Receipt Date: 20061010
  Transmission Date: 20070319
  Serious: Yes (Other)
  Sender: FDA-Public Use
  Company Number: US-JNJFOC-20061002737

PATIENT
  Sex: Female
  Weight: 48.08 kg

DRUGS (4)
  1. TYLENOL (CAPLET) [Suspect]
     Route: 048
  2. TYLENOL (CAPLET) [Suspect]
     Indication: HEADACHE
     Route: 048
  3. UNSPECIFIED SLEEP MEDICATION [Concomitant]
     Indication: SLEEP DISORDER
  4. INHALER [Concomitant]
     Indication: ASTHMA

REACTIONS (4)
  - BLOOD PRESSURE SYSTOLIC INCREASED [None]
  - ERYTHEMA [None]
  - POOR QUALITY DRUG ADMINISTERED [None]
  - TINNITUS [None]
